FAERS Safety Report 22141324 (Version 1)
Quarter: 2023Q1

REPORT INFORMATION
  Report Type: Report from Study
  Country: US (occurrence: US)
  Receive Date: 20230327
  Receipt Date: 20230327
  Transmission Date: 20230417
  Serious: Yes (Other)
  Sender: FDA-Public Use
  Company Number: US-UCBSA-2022060758

PATIENT
  Age: 34 Year
  Sex: Male

DRUGS (3)
  1. FINTEPLA [Suspect]
     Active Substance: FENFLURAMINE
     Indication: Product used for unknown indication
     Dosage: 4.1 MILLILITER, 2X/DAY (BID)
     Route: 058
  2. FINTEPLA [Suspect]
     Active Substance: FENFLURAMINE
     Dosage: 4.1 MILLILITER, 2X/DAY (BID)
  3. FINTEPLA [Suspect]
     Active Substance: FENFLURAMINE
     Dosage: 5.8 MILLILITER, 2X/DAY (BID)

REACTIONS (5)
  - Atonic seizures [Recovered/Resolved]
  - Sleep disorder [Unknown]
  - Product quality issue [Unknown]
  - Product availability issue [Unknown]
  - Therapy interrupted [Unknown]

NARRATIVE: CASE EVENT DATE: 20220801
